FAERS Safety Report 8818854 (Version 2)
Quarter: 2012Q4

REPORT INFORMATION
  Report Type: 
  Country: JP (occurrence: JP)
  Receive Date: 20121001
  Receipt Date: 20121119
  Transmission Date: 20130627
  Serious: Yes (Hospitalization)
  Sender: FDA-Public Use
  Company Number: JP-NOVOPROD-360303

PATIENT
  Age: 56 Year
  Sex: Female

DRUGS (2)
  1. NOVOLIN [Suspect]
     Indication: TYPE 2 DIABETES MELLITUS
     Dosage: 12 U, qd (10-20 UT)
     Route: 058
  2. NOVOLIN [Suspect]
     Dosage: 4200 U, qd
     Route: 058

REACTIONS (3)
  - Suicide attempt [Recovered/Resolved]
  - Intentional overdose [Recovered/Resolved]
  - Hypoglycaemia [Recovered/Resolved]
